FAERS Safety Report 5631752-0 (Version None)
Quarter: 2008Q1

REPORT INFORMATION
  Report Type: 
  Country: None (occurrence: None)
  Receive Date: 20080213
  Receipt Date: 20080130
  Transmission Date: 20080703
  Serious: Yes (Other)
  Sender: FDA-Public Use
  Company Number: DSJ-2008-01017

PATIENT
  Sex: Male
  Weight: 45.7 kg

DRUGS (4)
  1. OLMESARTAN MEDOXOMIL [Suspect]
     Indication: ESSENTIAL HYPERTENSION
     Dosage: 10 MG (10 MG,1 IN 1 D), PER ORAL
     Route: 048
     Dates: start: 20060610
  2. LANSOPRAZOLE [Concomitant]
  3. ALLOPURINOL [Concomitant]
  4. URALYT (MAGNESIUM PHOSPHAGE, CONVALLARIA GLYCOSDES, SOLIDAGO VIRGAUREA [Concomitant]

REACTIONS (4)
  - ANAEMIA [None]
  - HYPERURICAEMIA [None]
  - LIVER DISORDER [None]
  - RENAL DISORDER [None]
